FAERS Safety Report 5598884-7 (Version None)
Quarter: 2008Q1

REPORT INFORMATION
  Report Type: 
  Country: None (occurrence: None)
  Receive Date: 20080122
  Receipt Date: 20080116
  Transmission Date: 20080703
  Serious: Yes (Other)
  Sender: FDA-Public Use
  Company Number: GB-RANBAXY-2008RR-12655

PATIENT

DRUGS (4)
  1. CIPROFLOXACIN [Suspect]
     Indication: URINARY TRACT INFECTION
     Dosage: 250 MG, BID
     Route: 048
     Dates: start: 20071114, end: 20071120
  2. INDERAL LA [Concomitant]
     Dosage: 80 MEQ, UNK
     Route: 048
  3. INFLUENZA VACCINE (SPLIT VIRION, INACTIVATEDL) [Concomitant]
     Dosage: UNK
     Route: 030
     Dates: start: 20071020
  4. SUMATRIPTAN SUCCINATE [Concomitant]
     Indication: MIGRAINE
     Dosage: 50 MG, UNK
     Route: 048
     Dates: start: 20071024

REACTIONS (5)
  - ABDOMINAL PAIN [None]
  - BLOOD PRESSURE DECREASED [None]
  - DYSPHAGIA [None]
  - HYPERHIDROSIS [None]
  - ULCER [None]
